FAERS Safety Report 9435833 (Version 1)
Quarter: 2013Q3

REPORT INFORMATION
  Report Type: Spontaneous
  Country: US (occurrence: None)
  Receive Date: 20130801
  Receipt Date: 20130801
  Transmission Date: 20140515
  Serious: Yes (Other)
  Sender: FDA-Public Use
  Company Number: None

PATIENT
  Age: 13 Year
  Sex: Female

DRUGS (1)
  1. MINOCYCLINE [Suspect]
     Indication: ACNE
     Route: 048
     Dates: start: 201212, end: 201307

REACTIONS (5)
  - Arthralgia [None]
  - Fatigue [None]
  - Confusional state [None]
  - Feeling abnormal [None]
  - Thyroid disorder [None]
